FAERS Safety Report 9352403 (Version 1)
Quarter: 2013Q2

REPORT INFORMATION
  Report Type: Spontaneous
  Country: DE (occurrence: DE)
  Receive Date: 20130617
  Receipt Date: 20130617
  Transmission Date: 20140414
  Serious: Yes (Hospitalization)
  Sender: FDA-Public Use
  Company Number: DE-ELI_LILLY_AND_COMPANY-DE201306002374

PATIENT
  Age: 68 Year
  Sex: Male

DRUGS (2)
  1. HUMINSULIN NPH [Suspect]
     Indication: DIABETES MELLITUS
     Dosage: UNK, EACH EVENING
     Route: 058
  2. HUMINSULIN REGULAR [Suspect]
     Indication: DIABETES MELLITUS
     Dosage: UNK, QD
     Route: 058

REACTIONS (2)
  - Foot fracture [Unknown]
  - Blood glucose fluctuation [Unknown]
